FAERS Safety Report 8058613-4 (Version None)
Quarter: 2012Q1

REPORT INFORMATION
  Report Type: 
  Country: None (occurrence: None)
  Receive Date: 20120120
  Receipt Date: 20120109
  Transmission Date: 20120608
  Serious: Yes (Other)
  Sender: FDA-Public Use
  Company Number: US-BRISTOL-MYERS SQUIBB COMPANY-16336653

PATIENT
  Sex: Female

DRUGS (2)
  1. SAMARIUM-153 LEXIDRONAM [Suspect]
     Dosage: 1DF=1 MCI/KG
  2. ADRIAMYCIN PFS [Suspect]

REACTIONS (2)
  - FIBROSIS [None]
  - OEDEMA PERIPHERAL [None]
